FAERS Safety Report 25339709 (Version 1)
Quarter: 2025Q2

REPORT INFORMATION
  Report Type: Spontaneous
  Country: US (occurrence: US)
  Receive Date: 20250521
  Receipt Date: 20250521
  Transmission Date: 20250717
  Serious: No
  Sender: NOVARTIS
  Company Number: US-002147023-NVSC2025US079979

PATIENT
  Sex: Female

DRUGS (1)
  1. PROMACTA [Suspect]
     Active Substance: ELTROMBOPAG OLAMINE
     Indication: Gastric cancer
     Dosage: 50 MG, QD
     Route: 048
     Dates: start: 202503

REACTIONS (2)
  - Illness [Unknown]
  - Off label use [Unknown]
